FAERS Safety Report 6874913-5 (Version None)
Quarter: 2010Q3

REPORT INFORMATION
  Report Type: 
  Country: None (occurrence: None)
  Receive Date: 20100723
  Receipt Date: 20100712
  Transmission Date: 20110219
  Serious: Yes (Hospitalization, Other)
  Sender: FDA-Public Use
  Company Number: 7010588

PATIENT
  Sex: Female

DRUGS (1)
  1. REBIF [Suspect]
     Indication: MULTIPLE SCLEROSIS
     Dosage: 1 DF, 3 IN 1 WK, SUBCUTANEOUS
     Route: 058
     Dates: start: 20070101

REACTIONS (6)
  - FATIGUE [None]
  - HYPERTENSION [None]
  - PROTEINURIA [None]
  - TACHYCARDIA [None]
  - THROMBOCYTOPENIA [None]
  - VERTIGO [None]
